FAERS Safety Report 24543804 (Version 1)
Quarter: 2024Q4

REPORT INFORMATION
  Report Type: Spontaneous
  Country: IT (occurrence: IT)
  Receive Date: 20241024
  Receipt Date: 20241024
  Transmission Date: 20250115
  Serious: Yes (Other)
  Sender: SANDOZ
  Company Number: None

PATIENT
  Age: 56 Year
  Sex: Female

DRUGS (1)
  1. HYRIMOZ [Suspect]
     Active Substance: ADALIMUMAB-ADAZ
     Indication: Product used for unknown indication
     Dosage: 40 MG EVERY TWO WEEKS(OGNI DUE SETTIMANE)
     Route: 058

REACTIONS (2)
  - Granulomatous rosacea [Recovering/Resolving]
  - Alopecia areata [Recovering/Resolving]
